FAERS Safety Report 4545948-2 (Version None)
Quarter: 2005Q1

REPORT INFORMATION
  Report Type: 
  Country: None (occurrence: None)
  Receive Date: 20050106
  Receipt Date: 20041227
  Transmission Date: 20050727
  Serious: Yes (Other)
  Sender: FDA-Public Use
  Company Number: US-BRISTOL-MYERS SQUIBB COMPANY-12810495

PATIENT

DRUGS (5)
  1. PACLITAXEL [Suspect]
     Indication: BREAST CANCER
     Route: 042
  2. CYCLOPHOSPHAMIDE [Suspect]
     Indication: BREAST CANCER
     Route: 042
  3. FLUOROURACIL [Suspect]
     Indication: BREAST CANCER
     Route: 042
  4. ADRIAMYCIN PFS [Suspect]
     Indication: BREAST CANCER
     Route: 042
  5. RADIATION THERAPY [Suspect]
     Indication: BREAST CANCER

REACTIONS (1)
  - RADIATION PNEUMONITIS [None]
